FAERS Safety Report 5224675-2 (Version None)
Quarter: 2007Q1

REPORT INFORMATION
  Report Type: 
  Country: None (occurrence: None)
  Receive Date: 20070129
  Receipt Date: 20070129
  Transmission Date: 20070707
  Serious: Yes (Hospitalization)
  Sender: FDA-Public Use
  Company Number: None

PATIENT
  Sex: Female
  Weight: 105 kg

DRUGS (2)
  1. CYCLOPHOSPHAMIDE [Suspect]
     Dosage: 1302 MG
  2. DOXORUBICIN HYDROCHLORIDE [Suspect]
     Dosage: 1302 MG

REACTIONS (1)
  - LEUKOPENIA [None]
